FAERS Safety Report 9146444 (Version 1)
Quarter: 2013Q1

REPORT INFORMATION
  Report Type: Spontaneous
  Country: PR (occurrence: US)
  Receive Date: 20130307
  Receipt Date: 20130307
  Transmission Date: 20140127
  Serious: No
  Sender: FDA-Public Use
  Company Number: PR-009507513-1303USA000949

PATIENT
  Sex: Male

DRUGS (1)
  1. LOSARTAN POTASSIUM (+) HYDROCHLOROTHIAZIDE [Suspect]
     Route: 048

REACTIONS (1)
  - Adverse event [Unknown]
